FAERS Safety Report 7232667-7 (Version None)
Quarter: 2011Q1

REPORT INFORMATION
  Report Type: 
  Country: None (occurrence: None)
  Receive Date: 20110106
  Receipt Date: 20101221
  Transmission Date: 20110831
  Serious: Yes (Hospitalization)
  Sender: FDA-Public Use
  Company Number: AUR-APL-2010-02827

PATIENT
  Age: 52 Year
  Sex: Female
  Weight: 97.05 kg

DRUGS (7)
  1. ACCURETIC [Suspect]
     Indication: HYPERTENSION
     Dosage: 1 TABLET - DAILY - ORAL
     Route: 048
     Dates: start: 20070101, end: 20101028
  2. CLARITIN [Concomitant]
  3. ALAVERT [Concomitant]
  4. LOPRESSOR [Suspect]
     Indication: HYPERTENSION
     Dosage: 100MG - DAILY - ORAL
     Route: 048
     Dates: start: 20100707, end: 20101028
  5. LISINOPRIL [Concomitant]
  6. METOPROLOL TARTRATE [Suspect]
     Indication: HYPERTENSION
     Dosage: 100MG-QD-ORAL
     Route: 048
     Dates: start: 20100707, end: 20101028
  7. PF-04191834; NAPROXEN;PLACEBO (CODE NOT BROKEN) [Suspect]
     Indication: OSTEOARTHRITIS
     Dosage: BID - ORAL
     Route: 048
     Dates: start: 20101005, end: 20101024

REACTIONS (4)
  - BLOOD PRESSURE SYSTOLIC INCREASED [None]
  - CONDITION AGGRAVATED [None]
  - OSTEOARTHRITIS [None]
  - SYNCOPE [None]
